FAERS Safety Report 7027174-0 (Version None)
Quarter: 2010Q4

REPORT INFORMATION
  Report Type: 
  Country: None (occurrence: None)
  Receive Date: 20101004
  Receipt Date: 20100928
  Transmission Date: 20110411
  Serious: No
  Sender: FDA-Public Use
  Company Number: US-PFIZER INC-2010123831

PATIENT
  Sex: Female
  Weight: 44.444 kg

DRUGS (3)
  1. DEPO-PROVERA [Suspect]
     Indication: OFF LABEL USE
     Dosage: 150 MG, UNK
     Route: 030
     Dates: start: 20100401
  2. DEPO-PROVERA [Suspect]
     Indication: MENSTRUATION IRREGULAR
  3. ALLEGRA [Concomitant]
     Indication: HYPERSENSITIVITY
     Dosage: 180 MG, UNK

REACTIONS (2)
  - ALOPECIA [None]
  - GALACTORRHOEA [None]
